FAERS Safety Report 9641384 (Version 1)
Quarter: 2013Q4

REPORT INFORMATION
  Report Type: Spontaneous
  Country: US (occurrence: US)
  Receive Date: 20131023
  Receipt Date: 20131023
  Transmission Date: 20140711
  Serious: No
  Sender: FDA-Public Use
  Company Number: US-ABBVIE-12P-163-1014378-00

PATIENT
  Age: 43 Year
  Sex: Female
  Weight: 67.65 kg

DRUGS (4)
  1. LUPRON DEPOT [Suspect]
     Indication: ENDOMETRIOSIS
     Dates: start: 20121106
  2. NORTHINDRONE ACETATE [Concomitant]
     Indication: HORMONE THERAPY
  3. FLEXAPRINE [Concomitant]
     Indication: DEPRESSION
  4. MESALAMINE [Concomitant]
     Indication: COLITIS ULCERATIVE

REACTIONS (3)
  - Arthralgia [Not Recovered/Not Resolved]
  - Dysmenorrhoea [Not Recovered/Not Resolved]
  - Migraine [Not Recovered/Not Resolved]
